FAERS Safety Report 4901582-3 (Version None)
Quarter: 2006Q1

REPORT INFORMATION
  Report Type: 
  Country: None (occurrence: None)
  Receive Date: 20060206
  Receipt Date: 20050426
  Transmission Date: 20060701
  Serious: Yes (Other)
  Sender: FDA-Public Use
  Company Number: US-BRISTOL-MYERS SQUIBB COMPANY-12946539

PATIENT
  Sex: Female
  Weight: 75 kg

DRUGS (6)
  1. TAXOL [Suspect]
     Indication: BREAST CANCER
     Dosage: THERAPY START DATE ^^FOUR WEEKS AGO^
     Route: 042
  2. VICODIN [Concomitant]
  3. AMBIEN [Concomitant]
  4. NEUPOGEN [Concomitant]
  5. ADRIAMYCIN PFS [Concomitant]
  6. CYTOXAN [Concomitant]

REACTIONS (2)
  - PYREXIA [None]
  - URTICARIA [None]
